FAERS Safety Report 4663814-9 (Version None)
Quarter: 2005Q2

REPORT INFORMATION
  Report Type: 
  Country: None (occurrence: None)
  Receive Date: 20050516
  Receipt Date: 20050503
  Transmission Date: 20051028
  Serious: Yes (Other)
  Sender: FDA-Public Use
  Company Number: 2005071939

PATIENT
  Age: 65 Year
  Sex: Female

DRUGS (4)
  1. CELEBREX [Suspect]
     Indication: BACK DISORDER
     Dosage: 2 IN 1 D, ORAL
     Route: 048
     Dates: start: 20021003
  2. LEVOTHYROXINE SODIUM [Concomitant]
  3. ALENDRONATE SODIUM [Concomitant]
  4. LANSOPRAZOLE [Concomitant]

REACTIONS (6)
  - DYSPHAGIA [None]
  - IATROGENIC INJURY [None]
  - LARYNGEAL INJURY [None]
  - LUNG NEOPLASM MALIGNANT [None]
  - PHARMACEUTICAL PRODUCT COMPLAINT [None]
  - PROCEDURAL COMPLICATION [None]
